FAERS Safety Report 25813087 (Version 1)
Quarter: 2025Q3

REPORT INFORMATION
  Report Type: Spontaneous
  Country: JP (occurrence: JP)
  Receive Date: 20250917
  Receipt Date: 20250917
  Transmission Date: 20251020
  Serious: Yes (Death, Life-Threatening, Hospitalization)
  Sender: SANDOZ
  Company Number: JP-MLMSERVICE-20250905-PI636878-00218-1

PATIENT
  Age: 75 Year
  Sex: Male

DRUGS (1)
  1. METHOTREXATE [Suspect]
     Active Substance: METHOTREXATE
     Indication: Central nervous system lymphoma
     Route: 065

REACTIONS (9)
  - Multiple organ dysfunction syndrome [Fatal]
  - Device related infection [Fatal]
  - Candida infection [Fatal]
  - Renal impairment [Unknown]
  - Hepatic function abnormal [Unknown]
  - Respiratory disorder [Unknown]
  - Haemodynamic instability [Unknown]
  - Pancytopenia [Unknown]
  - Mycobacterial infection [Recovering/Resolving]
